FAERS Safety Report 15486197 (Version 1)
Quarter: 2018Q4

REPORT INFORMATION
  Report Type: Report from Study
  Country: DE (occurrence: DE)
  Receive Date: 20181011
  Receipt Date: 20181011
  Transmission Date: 20190205
  Serious: Yes (Other)
  Sender: FDA-Public Use
  Company Number: DE-ACCORD-073062

PATIENT
  Age: 58 Year
  Sex: Female
  Weight: 107.4 kg

DRUGS (23)
  1. XELODA [Suspect]
     Active Substance: CAPECITABINE
     Indication: COLORECTAL CANCER
     Dosage: 4000 MG, Q3W
     Route: 048
     Dates: start: 20160518, end: 20160621
  2. AVASTIN [Suspect]
     Active Substance: BEVACIZUMAB
     Indication: COLORECTAL CANCER METASTATIC
     Dosage: 525 MG, RECEIVED 09-MAR-2016 Q2W
     Route: 042
     Dates: start: 20160217, end: 20160309
  3. METOCLOPRAMIDE. [Concomitant]
     Active Substance: METOCLOPRAMIDE
     Indication: NAUSEA
     Dosage: 30 MG, TID
     Route: 048
     Dates: start: 20151014
  4. METOPROLOL. [Concomitant]
     Active Substance: METOPROLOL
     Indication: HYPERTENSION
     Dosage: 100 MG, QD
     Route: 048
  5. TARGIN [Concomitant]
     Active Substance: NALOXONE HYDROCHLORIDE\OXYCODONE HYDROCHLORIDE
     Indication: PAIN
     Route: 048
     Dates: start: 20151111
  6. GRANISETRON [Concomitant]
     Active Substance: GRANISETRON
     Indication: NAUSEA
     Dosage: 1 MG, QD
     Route: 042
     Dates: start: 20151014, end: 20160427
  7. OXALIPLATIN. [Concomitant]
     Active Substance: OXALIPLATIN
     Indication: COLORECTAL CANCER
     Dosage: 127-170 MG
     Route: 042
     Dates: start: 20151014, end: 20160309
  8. FILGRASTIM [Concomitant]
     Active Substance: FILGRASTIM
     Indication: NEUTROPENIA
     Dosage: 30 MIO. UNITS
     Route: 058
     Dates: start: 20151019, end: 20160427
  9. ONDANSETRON [Concomitant]
     Active Substance: ONDANSETRON
     Indication: NAUSEA
     Dosage: 8 MG, QD
     Route: 048
     Dates: start: 20151015
  10. MACROGOL [Concomitant]
     Active Substance: POLYETHYLENE GLYCOLS
     Indication: STOMATITIS
     Route: 048
     Dates: start: 20151028
  11. DEXAMETHASONE. [Concomitant]
     Active Substance: DEXAMETHASONE
     Indication: NAUSEA
     Dosage: 8 MG, QD
     Route: 042
     Dates: start: 20151014, end: 20160427
  12. FLUOROURACIL. [Suspect]
     Active Substance: FLUOROURACIL
     Indication: COLORECTAL CANCER
     Dosage: 3200 MG, Q2W
     Route: 042
     Dates: end: 20160427
  13. VERTIGOHEEL [Concomitant]
     Active Substance: HOMEOPATHICS
     Indication: DIZZINESS
     Route: 048
  14. METAMIZOLE SODIUM [Concomitant]
     Active Substance: METAMIZOLE SODIUM
     Indication: PAIN
     Dosage: 3 G, QD
     Route: 048
  15. VOMEX-A [Concomitant]
     Active Substance: DIMENHYDRINATE
     Indication: NAUSEA
     Dosage: 50 MG, UNK
     Route: 048
  16. CITALOPRAM [Concomitant]
     Active Substance: CITALOPRAM HYDROBROMIDE
     Indication: DEPRESSION
     Dosage: 10 MG, QD
     Route: 048
  17. LOPERAMIDE [Concomitant]
     Active Substance: LOPERAMIDE
     Indication: DIARRHOEA
     Route: 048
     Dates: start: 20151021
  18. FOLINIC ACID [Concomitant]
     Active Substance: LEUCOVORIN
     Indication: COLORECTAL CANCER
     Dosage: 400 MG, Q2W
     Route: 042
     Dates: start: 20151014, end: 20160309
  19. PENTOXIFYLLINE. [Concomitant]
     Active Substance: PENTOXIFYLLINE
     Indication: CARDIOVASCULAR DISORDER
     Dosage: 600 MG, QD
     Route: 048
  20. CAPECITABINE. [Concomitant]
     Active Substance: CAPECITABINE
     Indication: COLORECTAL CANCER
     Dosage: 400 MG, Q3W
     Route: 048
     Dates: start: 20160518, end: 20160531
  21. IRINOTECAN [Concomitant]
     Active Substance: IRINOTECAN
     Indication: COLORECTAL CANCER
     Dosage: 330 MG, Q2W
     Route: 042
     Dates: start: 20151014, end: 20160309
  22. DIPYRONE [Concomitant]
     Active Substance: DIPYRONE
     Indication: PAIN
     Route: 048
  23. ESOMEPRAZOLE. [Concomitant]
     Active Substance: ESOMEPRAZOLE MAGNESIUM
     Indication: ULCER
     Route: 048

REACTIONS (16)
  - Skin irritation [Not Recovered/Not Resolved]
  - Peripheral sensory neuropathy [Not Recovered/Not Resolved]
  - Alopecia [Not Recovered/Not Resolved]
  - Vomiting [Recovered/Resolved]
  - Thrombocytopenia [Not Recovered/Not Resolved]
  - Pain [Not Recovered/Not Resolved]
  - Leukopenia [Recovered/Resolved]
  - Insomnia [Recovered/Resolved]
  - Infection [Not Recovered/Not Resolved]
  - Fatigue [Not Recovered/Not Resolved]
  - Stomatitis [Recovered/Resolved]
  - Diarrhoea [Recovered/Resolved]
  - Headache [Not Recovered/Not Resolved]
  - Constipation [Recovered/Resolved]
  - Anaemia [Recovered/Resolved]
  - Nausea [Recovering/Resolving]

NARRATIVE: CASE EVENT DATE: 20160327
